FAERS Safety Report 10514295 (Version 1)
Quarter: 2014Q4

REPORT INFORMATION
  Report Type: Spontaneous
  Country: US (occurrence: US)
  Receive Date: 20141013
  Receipt Date: 20141013
  Transmission Date: 20150528
  Serious: Yes (Death, Hospitalization, Other)
  Sender: FDA-Public Use
  Company Number: US-MYLANLABS-2014M1006876

PATIENT

DRUGS (11)
  1. IBUPROFEN. [Interacting]
     Active Substance: IBUPROFEN
     Route: 065
  2. METOLAZONE. [Interacting]
     Active Substance: METOLAZONE
     Route: 065
  3. SOLU-MEDROL [Concomitant]
     Active Substance: METHYLPREDNISOLONE SODIUM SUCCINATE
     Route: 065
  4. VANCOMYCIN [Concomitant]
     Active Substance: VANCOMYCIN
     Route: 065
  5. ESOMEPRAZOLE [Interacting]
     Active Substance: ESOMEPRAZOLE
     Route: 065
  6. METHOTREXATE [Suspect]
     Active Substance: METHOTREXATE
     Indication: PSORIASIS
     Dosage: 12.5 MG WEEKLY
     Route: 065
  7. GLIPIZIDE. [Interacting]
     Active Substance: GLIPIZIDE
     Route: 065
  8. ASPIRIN. [Interacting]
     Active Substance: ASPIRIN
     Route: 065
  9. FUROSEMIDE. [Interacting]
     Active Substance: FUROSEMIDE
     Route: 065
  10. PIPERACILLIN AND TAZOBACTAM [Concomitant]
     Active Substance: PIPERACILLIN SODIUM\TAZOBACTAM SODIUM
     Route: 065
  11. INSULIN                            /01223207/ [Concomitant]
     Route: 065

REACTIONS (7)
  - Renal impairment [Fatal]
  - Skin erosion [Fatal]
  - Psoriasis [Fatal]
  - Pancytopenia [Not Recovered/Not Resolved]
  - Drug interaction [Not Recovered/Not Resolved]
  - Toxicity to various agents [Fatal]
  - Respiratory failure [Unknown]
